FAERS Safety Report 25842875 (Version 1)
Quarter: 2025Q3

REPORT INFORMATION
  Report Type: Spontaneous
  Country: EU (occurrence: EU)
  Receive Date: 20250924
  Receipt Date: 20250924
  Transmission Date: 20251021
  Serious: Yes (Other)
  Sender: LUNDBECK
  Company Number: EU-LUNDBECK-DKLU4017462

PATIENT
  Age: 37 Year
  Sex: Female

DRUGS (4)
  1. VYEPTI [Suspect]
     Active Substance: EPTINEZUMAB-JJMR
     Indication: Product used for unknown indication
     Route: 041
     Dates: start: 20240607
  2. PAROXETINE [Concomitant]
     Active Substance: PAROXETINE
     Indication: Obsessive-compulsive disorder
     Dosage: 20 MILLIGRAM
  3. LIMBITRYL [AMITRIPTYLINE HYDROCHLORIDE;CHLORDIAZEPOXIDE HYDROCHLORIDE] [Concomitant]
     Indication: Product used for unknown indication
  4. INDOMETHACIN SODIUM [Concomitant]
     Active Substance: INDOMETHACIN SODIUM
     Indication: Product used for unknown indication

REACTIONS (1)
  - Thyroid mass [Unknown]

NARRATIVE: CASE EVENT DATE: 20250508
